FAERS Safety Report 13069067 (Version 4)
Quarter: 2017Q2

REPORT INFORMATION
  Report Type: Other
  Country: FR (occurrence: FR)
  Receive Date: 20161228
  Receipt Date: 20170404
  Transmission Date: 20170830
  Serious: Yes (Disabling)
  Sender: FDA-Public Use
  Company Number: FR-CELLTRION INC.-2016FR014143

PATIENT

DRUGS (4)
  1. CORTANCYL [Concomitant]
     Active Substance: PREDNISONE
     Dosage: 40 MG, UNK
     Dates: start: 20140506
  2. INORIAL [Concomitant]
     Active Substance: BILASTINE
  3. INFLECTRA [Suspect]
     Active Substance: INFLIXIMAB-DYYB
     Indication: UVEITIS
     Dosage: 5 MG/KG (540 MG) ON WEEK 0 AND WEEK 2, THEN EVERY 4 WEEKS
     Route: 042
     Dates: start: 20160326, end: 20160808
  4. SINGULAIR [Concomitant]
     Active Substance: MONTELUKAST SODIUM

REACTIONS (4)
  - Enthesopathy [Not Recovered/Not Resolved]
  - Antinuclear antibody increased [Recovering/Resolving]
  - Polyarthritis [Not Recovered/Not Resolved]
  - Systemic lupus erythematosus [Not Recovered/Not Resolved]

NARRATIVE: CASE EVENT DATE: 2016
